FAERS Safety Report 16348228 (Version 2)
Quarter: 2019Q2

REPORT INFORMATION
  Report Type: Spontaneous
  Country: DE (occurrence: DE)
  Receive Date: 20190523
  Receipt Date: 20190610
  Transmission Date: 20190711
  Serious: Yes (Other)
  Sender: FDA-Public Use
  Company Number: DE-BAYER-2019-098901

PATIENT
  Age: 43 Year
  Sex: Female
  Weight: 86 kg

DRUGS (3)
  1. CIPROBAY 500 MG [Suspect]
     Active Substance: CIPROFLOXACIN
     Indication: URINARY TRACT DISORDER
     Dosage: 500 MG, BID
     Route: 048
     Dates: start: 20180620, end: 20180630
  2. CIPROBAY 500 MG [Suspect]
     Active Substance: CIPROFLOXACIN
     Indication: URINARY TRACT DISORDER
     Dosage: 1 DF
     Route: 048
  3. CIPROFLOXACIN BETAIN [Suspect]
     Active Substance: CIPROFLOXACIN
     Indication: URINARY TRACT DISORDER
     Dosage: 1 DF, BID
     Route: 042
     Dates: start: 20180820, end: 20180911

REACTIONS (4)
  - Diplopia [Recovering/Resolving]
  - Disturbance in attention [Not Recovered/Not Resolved]
  - IVth nerve paralysis [Not Recovered/Not Resolved]
  - Dizziness [Not Recovered/Not Resolved]

NARRATIVE: CASE EVENT DATE: 2019
